FAERS Safety Report 13791673 (Version 4)
Quarter: 2018Q1

REPORT INFORMATION
  Report Type: Report from Study
  Country: US (occurrence: US)
  Receive Date: 20170725
  Receipt Date: 20180201
  Transmission Date: 20180508
  Serious: Yes (Hospitalization, Other)
  Sender: FDA-Public Use
  Company Number: PHEH2017US022254

PATIENT
  Sex: Male

DRUGS (2)
  1. AFINITOR [Suspect]
     Active Substance: EVEROLIMUS
     Indication: CARCINOID SYNDROME
     Dosage: 10 MG, UNK
     Route: 048
  2. TELOTRISTAT ETHYL [Suspect]
     Active Substance: TELOTRISTAT ETHYL
     Indication: CARCINOID SYNDROME
     Dosage: 250 MG, TID
     Route: 048

REACTIONS (14)
  - Hepatic neoplasm [Unknown]
  - Breath sounds abnormal [Unknown]
  - Dizziness [Unknown]
  - Neoplasm progression [Unknown]
  - Peripheral swelling [Unknown]
  - Flushing [Unknown]
  - Intestinal obstruction [Unknown]
  - Constipation [Unknown]
  - Syncope [Unknown]
  - Fatigue [Unknown]
  - Diarrhoea [Unknown]
  - Cachexia [Unknown]
  - Abdominal pain lower [Unknown]
  - Asthenia [Unknown]
